FAERS Safety Report 7235832-8 (Version None)
Quarter: 2011Q1

REPORT INFORMATION
  Report Type: 
  Country: None (occurrence: None)
  Receive Date: 20110111
  Receipt Date: 20110105
  Transmission Date: 20110831
  Serious: Yes (Other)
  Sender: FDA-Public Use
  Company Number: 2011MA000164

PATIENT
  Age: 46 Year
  Sex: Male

DRUGS (7)
  1. FEVERALL [Suspect]
     Indication: ANALGESIC THERAPY
     Dosage: 1 G
  2. VITAMINS NOS (VITAMINS NOS) [Suspect]
  3. GINKGO BILOBA (GINKGO BILOBA) [Suspect]
  4. GINGER (ZINGIBER OFFICINALE RHIZOME) [Suspect]
  5. GINSENG (GINSENG) [Suspect]
  6. IBUPROFEN [Suspect]
     Indication: ANALGESIC THERAPY
     Dosage: 400 MG
  7. GARLIC (ALLIUM SATIVUM) [Suspect]

REACTIONS (2)
  - POST PROCEDURAL HAEMORRHAGE [None]
  - POTENTIATING DRUG INTERACTION [None]
